FAERS Safety Report 18641924 (Version 2)
Quarter: 2020Q4

REPORT INFORMATION
  Report Type: Spontaneous
  Country: HU (occurrence: HU)
  Receive Date: 20201221
  Receipt Date: 20201231
  Transmission Date: 20210114
  Serious: Yes (Death, Life-Threatening, Hospitalization, Other)
  Sender: FDA-Public Use
  Company Number: HU-LUPIN PHARMACEUTICALS INC.-2020-10384

PATIENT
  Age: 37 Year
  Sex: Female

DRUGS (5)
  1. VALPROIC ACID. [Interacting]
     Active Substance: VALPROIC ACID
     Indication: EPILEPSY
     Dosage: UNK
     Route: 065
  2. LAMOTRIGINE. [Suspect]
     Active Substance: LAMOTRIGINE
     Indication: EPILEPSY
     Dosage: 12.5 MILLIGRAM, QD
     Route: 065
  3. VALPROIC ACID. [Interacting]
     Active Substance: VALPROIC ACID
     Dosage: 600 MILLIGRAM, QD (IN THE EVENING)
     Route: 065
  4. LAMOTRIGINE. [Interacting]
     Active Substance: LAMOTRIGINE
     Dosage: 25 MILLIGRAM, QD
     Route: 065
  5. VALPROIC ACID. [Interacting]
     Active Substance: VALPROIC ACID
     Dosage: 450 MILLIGRAM, QD (IN THE MORNING)
     Route: 065

REACTIONS (14)
  - Pancytopenia [Unknown]
  - Toxic epidermal necrolysis [Fatal]
  - Atrial fibrillation [Fatal]
  - Multiple organ dysfunction syndrome [Fatal]
  - Sepsis [Fatal]
  - Respiratory failure [Fatal]
  - Drug interaction [Fatal]
  - Acute respiratory distress syndrome [Fatal]
  - Renal impairment [Unknown]
  - Hepatic enzyme increased [Unknown]
  - Drug level increased [Fatal]
  - Hypersensitivity [Fatal]
  - Influenza like illness [Unknown]
  - Pancreatic enzymes increased [Unknown]
